APPROVED DRUG PRODUCT: E-SOLVE 2
Active Ingredient: ERYTHROMYCIN
Strength: 2%
Dosage Form/Route: LOTION;TOPICAL
Application: A062467 | Product #001
Applicant: SYOSSET LABORATORIES INC
Approved: Jul 3, 1985 | RLD: No | RS: No | Type: DISCN